FAERS Safety Report 20550744 (Version 2)
Quarter: 2022Q1

REPORT INFORMATION
  Report Type: Report from Study
  Country: US (occurrence: US)
  Receive Date: 20220304
  Receipt Date: 20220311
  Transmission Date: 20220423
  Serious: Yes (Hospitalization, Other)
  Sender: FDA-Public Use
  Company Number: US-JNJFOC-20211145035

PATIENT
  Age: 78 Year
  Sex: Female
  Weight: 63.6 kg

DRUGS (4)
  1. ILOPROST [Suspect]
     Active Substance: ILOPROST
     Indication: Pulmonary hypertension
     Dosage: VENTAVIS 5.0 MCG INHALED 6 TO 9 TIMES PER DAY
     Route: 055
  2. REVATIO [Concomitant]
     Active Substance: SILDENAFIL CITRATE
  3. BOSENTAN [Concomitant]
     Active Substance: BOSENTAN
  4. DILTIAZEM [Concomitant]
     Active Substance: DILTIAZEM

REACTIONS (12)
  - Confusional state [Unknown]
  - Anxiety [Unknown]
  - Heart rate increased [Unknown]
  - Dizziness [Unknown]
  - Dyspnoea [Unknown]
  - Chest pain [Unknown]
  - Cataract [Unknown]
  - Cough [Unknown]
  - Drug ineffective [Unknown]
  - Device power source issue [Unknown]
  - Cholelithiasis [Unknown]
  - Product administration interrupted [Unknown]

NARRATIVE: CASE EVENT DATE: 20220206
